FAERS Safety Report 8147693-3 (Version None)
Quarter: 2012Q1

REPORT INFORMATION
  Report Type: 
  Country: None (occurrence: None)
  Receive Date: 20120218
  Receipt Date: 20111020
  Transmission Date: 20120608
  Serious: No
  Sender: FDA-Public Use
  Company Number: US-ALLERGAN-1103210US

PATIENT
  Age: 71 Year
  Sex: Female

DRUGS (1)
  1. BOTOX COSMETIC [Suspect]
     Indication: SKIN WRINKLING
     Dosage: 6 UNITS, SINGLE
     Route: 030
     Dates: start: 20101027, end: 20101027

REACTIONS (4)
  - THERAPEUTIC RESPONSE DECREASED [None]
  - FACIAL PARESIS [None]
  - PAIN IN JAW [None]
  - HYPOAESTHESIA [None]
